FAERS Safety Report 21962252 (Version 3)
Quarter: 2024Q1

REPORT INFORMATION
  Report Type: Report from Study
  Country: US (occurrence: US)
  Receive Date: 20230207
  Receipt Date: 20240207
  Transmission Date: 20240409
  Serious: No
  Sender: FDA-Public Use
  Company Number: US-HRARD-2021000834

PATIENT
  Age: 22 Year
  Sex: Female

DRUGS (6)
  1. LYSODREN [Suspect]
     Active Substance: MITOTANE
     Indication: Adrenal gland cancer
     Dosage: 1500 MG TID
     Route: 048
     Dates: start: 20210225
  2. LYSODREN [Suspect]
     Active Substance: MITOTANE
     Indication: Adrenal gland cancer
     Dosage: TITRATED UP TO 2000 MG TID
     Route: 048
  3. LYSODREN [Suspect]
     Active Substance: MITOTANE
     Indication: Adrenal gland cancer
     Dosage: 02 TABLETS DAILY
  4. FLUDROCORT TAB 0.1MG [Concomitant]
     Indication: Product used for unknown indication
  5. HYDROCORT TAB 20MG [Concomitant]
     Indication: Product used for unknown indication
  6. LEVOTHYROXIN TAB 50MCG [Concomitant]
     Indication: Product used for unknown indication

REACTIONS (4)
  - Contusion [Not Recovered/Not Resolved]
  - Nausea [Not Recovered/Not Resolved]
  - Diarrhoea [Not Recovered/Not Resolved]
  - Headache [Not Recovered/Not Resolved]

NARRATIVE: CASE EVENT DATE: 20210101
